FAERS Safety Report 8742729 (Version 4)
Quarter: 2013Q2

REPORT INFORMATION
  Report Type: Spontaneous
  Country: US (occurrence: US)
  Receive Date: 20120824
  Receipt Date: 20130513
  Transmission Date: 20140414
  Serious: Yes (Hospitalization)
  Sender: FDA-Public Use
  Company Number: US-B.I. PHARMACEUTICALS,INC./RIDGEFIELD-2012-BP-19927BP

PATIENT
  Age: 70 Year
  Sex: Female
  Weight: 104.33 kg

DRUGS (20)
  1. PRADAXA [Suspect]
     Indication: ATRIAL FIBRILLATION
     Dosage: 300 MG
     Dates: start: 20110819, end: 20110915
  2. ALBUTEROL [Concomitant]
  3. ALLOPURINOL [Concomitant]
     Dosage: 100 MG
  4. CELEBREX [Concomitant]
     Dosage: 200 MG
  5. ADVAIR [Concomitant]
     Route: 055
  6. FUROSEMIDE [Concomitant]
     Dosage: 40 MG
  7. LOPID [Concomitant]
     Dosage: 1200 MG
  8. HYDRALAZINE [Concomitant]
     Dosage: 50 MG
  9. LEVOTHYROXINE [Concomitant]
     Dosage: 125 MCG
  10. HYDRALAZINE [Concomitant]
     Dosage: 50 MG
  11. TOPROL [Concomitant]
     Dosage: 300 MG
  12. POTASSIUM [Concomitant]
     Dosage: 20 MEQ
  13. PRAMIPEXOLE [Concomitant]
     Dosage: 0.125 MG
  14. PREDNISONE [Concomitant]
     Dosage: 10 MG
  15. TRIMETHOPRIM [Concomitant]
     Dosage: 100 MG
  16. SOMA [Concomitant]
  17. NORCO [Concomitant]
  18. PROMETHAZINE [Concomitant]
  19. TRAMADOL [Concomitant]
  20. AMBIEN [Concomitant]

REACTIONS (2)
  - Gastrointestinal haemorrhage [Unknown]
  - Haemorrhagic anaemia [Unknown]
